FAERS Safety Report 7417965-6 (Version None)
Quarter: 2011Q2

REPORT INFORMATION
  Report Type: 
  Country: None (occurrence: None)
  Receive Date: 20110415
  Receipt Date: 20110318
  Transmission Date: 20111010
  Serious: No
  Sender: FDA-Public Use
  Company Number: US-B.I. PHARMACEUTICALS,INC./RIDGEFIELD-2011-BP-08565BP

PATIENT
  Age: 69 Year
  Sex: Female

DRUGS (7)
  1. POTASSIUM [Concomitant]
  2. PRADAXA [Suspect]
     Indication: ATRIAL FIBRILLATION
     Dosage: 300 MG
     Route: 048
     Dates: start: 20110301
  3. SIMVASTATIN [Concomitant]
     Indication: CARDIAC DISORDER
  4. BENICAR [Concomitant]
     Indication: CARDIAC DISORDER
  5. DIGOXIN [Concomitant]
     Indication: CARDIAC DISORDER
  6. COREG [Concomitant]
     Indication: CARDIAC DISORDER
  7. FUROSEMIDE [Concomitant]
     Indication: FLUID RETENTION

REACTIONS (1)
  - FLATULENCE [None]
